FAERS Safety Report 16458290 (Version 6)
Quarter: 2020Q1

REPORT INFORMATION
  Report Type: Report from Study
  Country: PL (occurrence: PL)
  Receive Date: 20190620
  Receipt Date: 20200214
  Transmission Date: 20200409
  Serious: Yes (Hospitalization)
  Sender: FDA-Public Use
  Company Number: PL-GLAXOSMITHKLINE-PL2019GSK106505

PATIENT
  Age: 46 Year
  Sex: Female
  Weight: 69.7 kg

DRUGS (3)
  1. MEPOLIZUMAB [Suspect]
     Active Substance: MEPOLIZUMAB
     Indication: HYPEREOSINOPHILIC SYNDROME
     Dosage: 100 MG, Z (EVERY 4 WEEK)
     Route: 058
     Dates: start: 20181010, end: 20190610
  2. METYPRED [Concomitant]
     Active Substance: METHYLPREDNISOLONE
     Indication: HYPEREOSINOPHILIC SYNDROME
     Dosage: 4 MG, QD
     Route: 048
     Dates: start: 20190301
  3. METYPRED [Concomitant]
     Active Substance: METHYLPREDNISOLONE
     Dosage: 2 MG, QOD
     Route: 048
     Dates: start: 20190301

REACTIONS (2)
  - Sinusitis [Recovered/Resolved]
  - Condition aggravated [Recovered/Resolved]

NARRATIVE: CASE EVENT DATE: 20190610
